FAERS Safety Report 23100072 (Version 1)
Quarter: 2023Q4

REPORT INFORMATION
  Report Type: Report from Study
  Country: CR (occurrence: CR)
  Receive Date: 20231024
  Receipt Date: 20231024
  Transmission Date: 20240110
  Serious: Yes (Other)
  Sender: FDA-Public Use
  Company Number: CR-002147023-NVSC2023CR226369

PATIENT
  Age: 90 Year
  Sex: Male

DRUGS (2)
  1. HYDROCHLOROTHIAZIDE\VALSARTAN [Suspect]
     Active Substance: HYDROCHLOROTHIAZIDE\VALSARTAN
     Indication: Hypertension
     Dosage: 0.5 DOSAGE FORM, QD (320/12.5 MG)
     Route: 048
  2. DIOVAN [Suspect]
     Active Substance: VALSARTAN
     Indication: Hypertension
     Dosage: 320 MG, QD
     Route: 048
     Dates: start: 202309

REACTIONS (6)
  - Cerebrovascular accident [Recovering/Resolving]
  - Infarction [Recovering/Resolving]
  - Dyspnoea [Unknown]
  - Intentional product misuse [Unknown]
  - Wrong technique in product usage process [Unknown]
  - Drug ineffective [Recovering/Resolving]

NARRATIVE: CASE EVENT DATE: 20230901
